FAERS Safety Report 24823397 (Version 1)
Quarter: 2025Q1

REPORT INFORMATION
  Report Type: Spontaneous
  Country: DK (occurrence: DK)
  Receive Date: 20250109
  Receipt Date: 20250109
  Transmission Date: 20250408
  Serious: Yes (Hospitalization, Other)
  Sender: CHEPLAPHARM
  Company Number: None

PATIENT
  Age: 37 Year
  Sex: Female
  Weight: 68 kg

DRUGS (4)
  1. OLANZAPINE PAMOATE [Suspect]
     Active Substance: OLANZAPINE PAMOATE
     Indication: Mental disorder
     Dates: start: 20220830
  2. OLANZAPINE PAMOATE [Suspect]
     Active Substance: OLANZAPINE PAMOATE
     Indication: Mental disorder
     Dosage: START OF TREATMENT SERIES: 30AUG2022. DRUG WITHDRAWN ON 11OCT2024.?DOSE FORM: POWDER AND SOLVENT ...
     Route: 030
     Dates: start: 20241009, end: 20241011
  3. OLANZAPINE [Concomitant]
     Active Substance: OLANZAPINE
     Indication: Schizophrenia
     Dosage: STRENGTH: 10 MG?DAILY DOSE: 10 MILLIGRAM
     Dates: start: 20240131
  4. ZOPICLONE [Concomitant]
     Active Substance: ZOPICLONE
     Indication: Insomnia
     Dates: start: 20240911, end: 20241020

REACTIONS (7)
  - Post procedural complication [Recovered/Resolved]
  - Anaphylactic shock [Recovered/Resolved]
  - Hyperhidrosis [Unknown]
  - Malaise [Unknown]
  - Dizziness [Unknown]
  - Dysarthria [Recovered/Resolved]
  - Fatigue [Unknown]

NARRATIVE: CASE EVENT DATE: 20241009
